FAERS Safety Report 8786204 (Version 2)
Quarter: 2012Q4

REPORT INFORMATION
  Report Type: 
  Country: US (occurrence: US)
  Receive Date: 20120914
  Receipt Date: 20120926
  Transmission Date: 20130627
  Serious: Yes (Death)
  Sender: FDA-Public Use
  Company Number: US-ROCHE-1127649

PATIENT
  Sex: Male

DRUGS (4)
  1. AVASTIN [Suspect]
     Indication: MALIGNANT RESPIRATORY TRACT NEOPLASM
  2. AVASTIN [Suspect]
     Indication: MALIGNANT RESPIRATORY TRACT NEOPLASM
  3. AVASTIN [Suspect]
     Indication: GASTROINTESTINAL CARCINOMA
  4. AVASTIN [Suspect]
     Indication: MALIGNANT NEOPLASM OF PLEURA

REACTIONS (1)
  - Malignant neoplasm progression [Fatal]
